FAERS Safety Report 15548423 (Version 1)
Quarter: 2018Q4

REPORT INFORMATION
  Report Type: Spontaneous
  Country: SG (occurrence: SG)
  Receive Date: 20181025
  Receipt Date: 20181025
  Transmission Date: 20190205
  Serious: Yes (Life-Threatening, Hospitalization)
  Sender: FDA-Public Use
  Company Number: SG-BAXTER-2018BAX026038

PATIENT
  Age: 89 Year
  Sex: Male

DRUGS (2)
  1. BUPIVACAINE INJECTION [Suspect]
     Active Substance: BUPIVACAINE
     Indication: SPINAL ANAESTHESIA
     Dosage: AT L4/5 LEVEL
     Route: 065
  2. FENTANYL. [Suspect]
     Active Substance: FENTANYL
     Indication: SPINAL ANAESTHESIA
     Dosage: AT L4/5 LEVEL
     Route: 065

REACTIONS (1)
  - Sinus node dysfunction [Unknown]
